FAERS Safety Report 9909946 (Version 2)
Quarter: 2014Q1

REPORT INFORMATION
  Report Type: Spontaneous
  Country: IN (occurrence: IN)
  Receive Date: 20140219
  Receipt Date: 20140303
  Transmission Date: 20141002
  Serious: Yes (Hospitalization, Other)
  Sender: FDA-Public Use
  Company Number: IN-B.I. PHARMACEUTICALS,INC./RIDGEFIELD-2014-BI-06448IG

PATIENT
  Age: 54 Year
  Sex: Male
  Weight: 105 kg

DRUGS (3)
  1. TRAJENTA [Suspect]
     Indication: TYPE 2 DIABETES MELLITUS
     Dosage: 5 MG
     Route: 048
     Dates: start: 20140206, end: 20140211
  2. METFORMIN [Concomitant]
     Dosage: 2000 MG
     Route: 065
  3. VOGLIBOSE [Concomitant]
     Route: 065

REACTIONS (3)
  - Dyspepsia [Recovered/Resolved]
  - Hyperchlorhydria [Recovered/Resolved]
  - Hyperglycaemia [Recovered/Resolved]
